FAERS Safety Report 8862555 (Version 1)
Quarter: 2012Q4

REPORT INFORMATION
  Report Type: 
  Country: DE (occurrence: DE)
  Receive Date: 20121026
  Receipt Date: 20121026
  Transmission Date: 20130627
  Serious: Yes (Death, Other)
  Sender: FDA-Public Use
  Company Number: DE-JNJFOC-20121010714

PATIENT
  Age: 54 Year
  Sex: Male

DRUGS (6)
  1. DOXORUBICIN [Suspect]
     Indication: BURKITT^S LYMPHOMA
     Dosage: on day 3
     Route: 065
  2. CYCLOPHOSPHAMIDE [Suspect]
     Indication: BURKITT^S LYMPHOMA
     Dosage: on day 3
     Route: 065
  3. VINCRISTINE [Suspect]
     Indication: BURKITT^S LYMPHOMA
     Dosage: on day 1
     Route: 065
  4. PREDNISOLONE [Suspect]
     Indication: BURKITT^S LYMPHOMA
     Dosage: on days 1 through 5
     Route: 065
  5. PREDNISOLONE [Concomitant]
     Indication: IMMUNOSUPPRESSION
     Route: 065
  6. TACROLIMUS [Concomitant]
     Indication: IMMUNOSUPPRESSION
     Route: 065

REACTIONS (5)
  - Respiratory arrest [Fatal]
  - Leukopenia [Unknown]
  - Metastases to meninges [Unknown]
  - Pneumonia [Unknown]
  - Burkitt^s lymphoma [Unknown]
